FAERS Safety Report 7233737-X (Version None)
Quarter: 2011Q1

REPORT INFORMATION
  Report Type: 
  Country: None (occurrence: None)
  Receive Date: 20110119
  Receipt Date: 20110113
  Transmission Date: 20110831
  Serious: Yes (Hospitalization)
  Sender: FDA-Public Use
  Company Number: US-PFIZER INC-2011009540

PATIENT
  Sex: Female

DRUGS (4)
  1. ADRIAMYCIN PFS [Suspect]
     Indication: BREAST CANCER
     Dosage: UNK
     Dates: start: 20101213, end: 20101213
  2. TAXOTERE [Suspect]
     Indication: BREAST CANCER
     Dosage: 127 MG, EVERY CYCLE
     Route: 042
     Dates: start: 20101213, end: 20101213
  3. CYCLOPHOSPHAMIDE [Suspect]
     Indication: BREAST CANCER
     Dosage: UNK
     Dates: start: 20101213, end: 20101213
  4. NEULASTA [Suspect]
     Indication: BREAST CANCER
     Dosage: UNK
     Dates: start: 20101214, end: 20101214

REACTIONS (1)
  - FEBRILE NEUTROPENIA [None]
